FAERS Safety Report 4348358-6 (Version None)
Quarter: 2004Q2

REPORT INFORMATION
  Report Type: 
  Country: None (occurrence: None)
  Receive Date: 20040427
  Receipt Date: 20040415
  Transmission Date: 20050107
  Serious: Yes (Other)
  Sender: FDA-Public Use
  Company Number: PHRM2004FR01566

PATIENT
  Sex: Male

DRUGS (4)
  1. NEORAL [Suspect]
     Indication: HEART TRANSPLANT
     Dosage: 200 MG DAILY
     Route: 048
     Dates: start: 19880101
  2. PREDNISONE [Suspect]
     Indication: HEART TRANSPLANT
     Dosage: 5 MG, QOD
     Route: 048
  3. IMUREL [Suspect]
     Indication: HEART TRANSPLANT
     Dosage: 50 MG, QD
     Route: 048
  4. COZAAR [Suspect]
     Dosage: 50 MG, QD
     Route: 048

REACTIONS (5)
  - ERECTILE DYSFUNCTION [None]
  - HYPOAESTHESIA [None]
  - NEUROPATHY PERIPHERAL [None]
  - PARAESTHESIA [None]
  - POLLAKIURIA [None]
